FAERS Safety Report 23289014 (Version 1)
Quarter: 2023Q4

REPORT INFORMATION
  Report Type: Report from Study
  Country: JP (occurrence: JP)
  Receive Date: 20231212
  Receipt Date: 20231212
  Transmission Date: 20240109
  Serious: Yes (Other)
  Sender: FDA-Public Use
  Company Number: JP-SUN PHARMACEUTICAL INDUSTRIES LTD-2023R1-423317

PATIENT

DRUGS (9)
  1. CISPLATIN [Suspect]
     Active Substance: CISPLATIN
     Indication: Oesophageal cancer metastatic
     Dosage: UNK
     Route: 065
  2. DOCETAXEL [Suspect]
     Active Substance: DOCETAXEL\DOCETAXEL ANHYDROUS
     Indication: Oesophageal cancer metastatic
     Dosage: UNK
     Route: 065
  3. FLUOROURACIL [Suspect]
     Active Substance: FLUOROURACIL
     Indication: Oesophageal cancer metastatic
     Dosage: UNK
     Route: 065
  4. APREPITANT [Concomitant]
     Active Substance: APREPITANT
     Indication: Antiemetic supportive care
     Dosage: 125 MILLIGRAM
     Route: 048
  5. APREPITANT [Concomitant]
     Active Substance: APREPITANT
     Dosage: 80 MILLIGRAM
     Route: 048
  6. DEXAMETHASONE [Concomitant]
     Active Substance: DEXAMETHASONE
     Indication: Antiemetic supportive care
     Dosage: 9.9 MILLIGRAM
     Route: 065
  7. DEXAMETHASONE [Concomitant]
     Active Substance: DEXAMETHASONE
     Dosage: 6.6 MILLIGRAM
     Route: 042
  8. LEVOFLOXACIN [Concomitant]
     Active Substance: LEVOFLOXACIN
     Indication: Febrile neutropenia
     Dosage: 500 MILLIGRAM
     Route: 048
  9. PALONOSETRON [Concomitant]
     Active Substance: PALONOSETRON
     Indication: Antiemetic supportive care
     Dosage: 0.75 MILLIGRAM
     Route: 042

REACTIONS (1)
  - Blood creatinine increased [Unknown]
